FAERS Safety Report 9899987 (Version 1)
Quarter: 2014Q1

REPORT INFORMATION
  Report Type: Not Available
  Country: US (occurrence: US)
  Receive Date: 20140214
  Receipt Date: 20140214
  Transmission Date: 20141002
  Serious: No
  Sender: FDA-Public Use
  Company Number: US-VIVUS-2013V1000862

PATIENT
  Age: 44 Year
  Sex: Male
  Weight: 112.27 kg

DRUGS (5)
  1. QSYMIA 3.75MG/23MG [Suspect]
     Indication: PRODUCT USED FOR UNKNOWN INDICATION
     Route: 048
     Dates: start: 201307, end: 201308
  2. METFORMIN [Concomitant]
     Indication: TYPE 2 DIABETES MELLITUS
     Dosage: STARTED MORE THAN 1 YEAR AGO
     Route: 048
  3. PRAVASTATIN [Concomitant]
     Indication: DYSLIPIDAEMIA
     Dosage: ^LOW DOSE^, STARTED MORE THAN 1 YEAR AGO
     Route: 048
  4. UNSPECIFIED ACE INHIBITOR [Concomitant]
     Indication: HYPERTENSION
     Dosage: ^LOW DOSE^, STARTED MORE THAN 1 YEAR AGO
     Route: 048
  5. QSYMIA 7.5MG/46MG [Suspect]
     Indication: PRODUCT USED FOR UNKNOWN INDICATION
     Route: 048
     Dates: start: 201308

REACTIONS (3)
  - Food craving [Recovered/Resolved]
  - Dizziness [Not Recovered/Not Resolved]
  - Blood pressure decreased [Not Recovered/Not Resolved]
